FAERS Safety Report 23808562 (Version 1)
Quarter: 2024Q2

REPORT INFORMATION
  Report Type: Spontaneous
  Country: US (occurrence: US)
  Receive Date: 20240502
  Receipt Date: 20240502
  Transmission Date: 20240716
  Serious: No
  Sender: FDA-Public Use
  Company Number: US-PFIZER INC-PV202400057075

PATIENT
  Age: 35 Year
  Sex: Female

DRUGS (1)
  1. NURTEC ODT [Suspect]
     Active Substance: RIMEGEPANT SULFATE
     Indication: Migraine
     Dosage: TAKE 1 TABLET ON OR UNDER THE TONGUE AT MIGRAINE ONSET. DO NOT REPEAT. MAX 1/DAY. MAX 8 DAYS/MO.
     Route: 048

REACTIONS (1)
  - Drug ineffective [Unknown]
